FAERS Safety Report 9290935 (Version 1)
Quarter: 2013Q2

REPORT INFORMATION
  Report Type: Spontaneous
  Country: ZA (occurrence: ZA)
  Receive Date: 20130515
  Receipt Date: 20130515
  Transmission Date: 20140414
  Serious: Yes (Other)
  Sender: FDA-Public Use
  Company Number: ZA-JNJFOC-20130502487

PATIENT
  Sex: Female

DRUGS (5)
  1. REVELLEX [Suspect]
     Indication: COLITIS ULCERATIVE
     Dosage: 3RD INFUSION
     Route: 042
     Dates: start: 20130111
  2. REVELLEX [Suspect]
     Indication: COLITIS ULCERATIVE
     Dosage: 4TH INFUSION
     Route: 042
     Dates: start: 20130312
  3. REVELLEX [Suspect]
     Indication: COLITIS ULCERATIVE
     Dosage: 5TH INFUSION
     Route: 042
     Dates: start: 20130507
  4. REVELLEX [Suspect]
     Indication: COLITIS ULCERATIVE
     Dosage: 2ND INFUSION
     Route: 042
     Dates: start: 20121214
  5. REVELLEX [Suspect]
     Indication: COLITIS ULCERATIVE
     Dosage: 1ST INFUSION
     Route: 042
     Dates: start: 20121130

REACTIONS (2)
  - Pyoderma gangrenosum [Unknown]
  - Colitis ulcerative [Unknown]
